FAERS Safety Report 8017117-5 (Version None)
Quarter: 2012Q1

REPORT INFORMATION
  Report Type: 
  Country: None (occurrence: None)
  Receive Date: 20120102
  Receipt Date: 20111223
  Transmission Date: 20120608
  Serious: Yes (Other)
  Sender: FDA-Public Use
  Company Number: DE-ROCHE-1019214

PATIENT
  Age: 68 Year
  Sex: Female
  Weight: 42 kg

DRUGS (1)
  1. BONIVA [Suspect]
     Indication: OSTEOPOROSIS POSTMENOPAUSAL
     Route: 042
     Dates: start: 20100710

REACTIONS (2)
  - ARTHROPATHY [None]
  - ADVERSE DRUG REACTION [None]
